FAERS Safety Report 5247039-4 (Version None)
Quarter: 2007Q1

REPORT INFORMATION
  Report Type: 
  Country: None (occurrence: None)
  Receive Date: 20070226
  Receipt Date: 20070223
  Transmission Date: 20070707
  Serious: Yes (Death, Life-Threatening, Hospitalization)
  Sender: FDA-Public Use
  Company Number: DE-GLAXOSMITHKLINE-D0052405A

PATIENT
  Age: 96 Year
  Sex: Female
  Weight: 75 kg

DRUGS (2)
  1. AUGMENTIN '125' [Suspect]
     Indication: URINARY TRACT INFECTION
     Dosage: 1000MG TWICE PER DAY
     Route: 048
     Dates: start: 20070109, end: 20070111
  2. CIPROFLOXACIN HCL [Suspect]
     Indication: URINARY TRACT INFECTION
     Dosage: 250MG TWICE PER DAY
     Route: 048
     Dates: start: 20070111, end: 20070113

REACTIONS (7)
  - CLOSTRIDIUM DIFFICILE TOXIN TEST POSITIVE [None]
  - DIARRHOEA [None]
  - FAILURE TO ANASTOMOSE [None]
  - MULTI-ORGAN FAILURE [None]
  - PERITONITIS [None]
  - PSEUDOMEMBRANOUS COLITIS [None]
  - SEPSIS [None]
